FAERS Safety Report 14516073 (Version 1)
Quarter: 2018Q1

REPORT INFORMATION
  Report Type: Report from Study
  Country: US (occurrence: US)
  Receive Date: 20180211
  Receipt Date: 20180211
  Transmission Date: 20180509
  Serious: No
  Sender: FDA-Public Use
  Company Number: US-PUMA BIOTECHNOLOGY, LTD.-2017US015817

PATIENT

DRUGS (4)
  1. NERLYNX [Suspect]
     Active Substance: NERATINIB
     Indication: BREAST CANCER
     Dosage: 6 TABLETS, DAILY
     Route: 048
     Dates: start: 20171108, end: 20171113
  2. IMODIUM [Suspect]
     Active Substance: LOPERAMIDE HYDROCHLORIDE
     Indication: DIARRHOEA
     Dosage: 4 MG, UNK
  3. IBRANCE [Suspect]
     Active Substance: PALBOCICLIB
     Indication: PRODUCT USED FOR UNKNOWN INDICATION
  4. NERLYNX [Suspect]
     Active Substance: NERATINIB
     Dosage: 6 TABLETS, DAILY
     Route: 048
     Dates: start: 20171127

REACTIONS (8)
  - Diarrhoea [Recovering/Resolving]
  - Nausea [Recovering/Resolving]
  - Nail discolouration [Unknown]
  - Fatigue [Recovering/Resolving]
  - Onychoclasis [Unknown]
  - Constipation [Unknown]
  - Dizziness [Unknown]
  - Decreased appetite [Recovering/Resolving]

NARRATIVE: CASE EVENT DATE: 20171215
